FAERS Safety Report 9391485 (Version 2)
Quarter: 2013Q3

REPORT INFORMATION
  Report Type: Spontaneous
  Country: US (occurrence: US)
  Receive Date: 20130709
  Receipt Date: 20130808
  Transmission Date: 20140515
  Serious: Yes (Other)
  Sender: FDA-Public Use
  Company Number: US-TEVA-416590USA

PATIENT
  Age: 33 Year
  Sex: Female
  Weight: 65.38 kg

DRUGS (1)
  1. PARAGARD 380A [Suspect]
     Indication: CONTRACEPTION
     Route: 015
     Dates: start: 20130501, end: 20130517

REACTIONS (1)
  - Device dislocation [Recovered/Resolved]
